FAERS Safety Report 14603751 (Version 2)
Quarter: 2025Q4

REPORT INFORMATION
  Report Type: Spontaneous
  Country: GB (occurrence: GB)
  Receive Date: 20180306
  Receipt Date: 20251218
  Transmission Date: 20260118
  Serious: Yes (Other)
  Sender: TEVA
  Company Number: GB-BAYER-2014-160004

PATIENT
  Age: 66 Year
  Sex: Female

DRUGS (4)
  1. PREDNISOLONE [Suspect]
     Active Substance: PREDNISOLONE
     Indication: Polymyalgia rheumatica
     Route: 065
  2. BETAFERON [Suspect]
     Active Substance: INTERFERON BETA-1B
     Indication: Multiple sclerosis
     Dosage: DOSAGE TEXT: 250 ?G, QOD
     Route: 058
     Dates: start: 20110713
  3. INFLUENZA VIRUS VACCINE [Suspect]
     Active Substance: INFLUENZA VIRUS VACCINE
     Indication: Immunisation
     Route: 065
  4. INFLUENZA VIRUS VACCINE [Suspect]
     Active Substance: INFLUENZA VIRUS VACCINE
     Indication: Product used for unknown indication
     Route: 065

REACTIONS (17)
  - Gait disturbance [Unknown]
  - Nail disorder [Unknown]
  - Mobility decreased [Unknown]
  - Contusion [Unknown]
  - Neck pain [Unknown]
  - Dyspnoea [Unknown]
  - Myalgia [Unknown]
  - Musculoskeletal disorder [Unknown]
  - Asthma [Unknown]
  - Polymyalgia rheumatica [Unknown]
  - Injection site bruising [Unknown]
  - Injection site pain [Unknown]
  - Arthritis [Unknown]
  - Depression [Recovering/Resolving]
  - Gait disturbance [Unknown]
  - Muscular weakness [Unknown]
  - Pain in extremity [Unknown]

NARRATIVE: CASE EVENT DATE: 20141001
